FAERS Safety Report 7518210-3 (Version None)
Quarter: 2011Q2

REPORT INFORMATION
  Report Type: 
  Country: None (occurrence: None)
  Receive Date: 20110602
  Receipt Date: 20110517
  Transmission Date: 20111010
  Serious: No
  Sender: FDA-Public Use
  Company Number: US-B.I. PHARMACEUTICALS,INC./RIDGEFIELD-2011-BP-13341BP

PATIENT
  Age: 85 Year
  Sex: Female

DRUGS (7)
  1. SPIRIVA [Suspect]
     Indication: CHRONIC OBSTRUCTIVE PULMONARY DISEASE
     Dosage: 18 MCG
     Route: 055
     Dates: start: 20110507, end: 20110513
  2. DUONEB [Concomitant]
     Indication: ASTHMA
     Dates: start: 20050101
  3. ADVAIR DISKUS 100/50 [Concomitant]
     Indication: ASTHMA
     Dates: start: 20050101
  4. THEOPHYLLINE [Concomitant]
     Indication: ASTHMA
     Dates: start: 20050101
  5. ZYRTEC [Concomitant]
     Indication: SEASONAL ALLERGY
     Dates: start: 20050101
  6. O2 [Concomitant]
     Indication: ASTHMA
     Dates: start: 20050101
  7. NITROGLYN 2% OINTMENT [Concomitant]
     Dates: start: 20050101

REACTIONS (5)
  - CHEST PAIN [None]
  - DRY MOUTH [None]
  - PRURITUS [None]
  - DYSPNOEA [None]
  - PALPITATIONS [None]
